FAERS Safety Report 7797403-4 (Version None)
Quarter: 2011Q4

REPORT INFORMATION
  Report Type: 
  Country: None (occurrence: None)
  Receive Date: 20111003
  Receipt Date: 20110927
  Transmission Date: 20120403
  Serious: Yes (Other)
  Sender: FDA-Public Use
  Company Number: PT-GDP-11410290

PATIENT
  Sex: Male
  Weight: 60 kg

DRUGS (2)
  1. AZITHROMYCIN [Concomitant]
  2. EPIDUO [Suspect]
     Indication: ACNE
     Dosage: 1 DF QD TOPICAL
     Route: 061
     Dates: start: 20110211, end: 20110211

REACTIONS (3)
  - EYE OEDEMA [None]
  - ERYTHEMA [None]
  - PRURITUS [None]
